FAERS Safety Report 5997618-1 (Version None)
Quarter: 2008Q4

REPORT INFORMATION
  Report Type: 
  Country: None (occurrence: None)
  Receive Date: 20081212
  Receipt Date: 20081208
  Transmission Date: 20090506
  Serious: Yes (Other)
  Sender: FDA-Public Use
  Company Number: CA-PFIZER INC-2008151535

PATIENT

DRUGS (4)
  1. DETROL LA [Interacting]
  2. ERYTHROMYCIN [Suspect]
  3. FLOMAX [Interacting]
  4. ANALGESICS [Suspect]

REACTIONS (5)
  - DIVERTICULITIS [None]
  - DRUG INTERACTION [None]
  - MICTURITION URGENCY [None]
  - URINARY INCONTINENCE [None]
  - URINARY RETENTION [None]
